FAERS Safety Report 17495077 (Version 3)
Quarter: 2020Q2

REPORT INFORMATION
  Report Type: Spontaneous
  Country: US (occurrence: US)
  Receive Date: 20200303
  Receipt Date: 20200430
  Transmission Date: 20200713
  Serious: No
  Sender: FDA-Public Use
  Company Number: NVSC2020US058276

PATIENT
  Sex: Male

DRUGS (7)
  1. VENCLEXTA [Suspect]
     Active Substance: VENETOCLAX
     Indication: CHRONIC LYMPHOCYTIC LEUKAEMIA
     Dosage: 100 MG, QD
     Route: 048
     Dates: start: 20200113
  2. VENCLEXTA [Suspect]
     Active Substance: VENETOCLAX
     Dosage: 50 MG, QD
     Route: 048
  3. PROMACTA [Suspect]
     Active Substance: ELTROMBOPAG OLAMINE
     Dosage: 50 MG, QD
     Route: 048
     Dates: start: 20200123
  4. PROMACTA [Suspect]
     Active Substance: ELTROMBOPAG OLAMINE
     Dosage: 50 MG, QD
     Route: 048
     Dates: start: 20200123
  5. VENCLEXTA [Suspect]
     Active Substance: VENETOCLAX
     Dosage: 100 MG, QD
     Route: 048
     Dates: start: 20200113
  6. PROMACTA [Suspect]
     Active Substance: ELTROMBOPAG OLAMINE
     Indication: IMMUNE THROMBOCYTOPENIA
     Dosage: 50 MG, QD
     Route: 048
     Dates: start: 20200123
  7. VENCLEXTA [Suspect]
     Active Substance: VENETOCLAX
     Dosage: 100 MG, QD
     Route: 048
     Dates: start: 20200115

REACTIONS (11)
  - Muscle spasms [Unknown]
  - White blood cell disorder [Unknown]
  - Balance disorder [Unknown]
  - Drug intolerance [Unknown]
  - Micturition disorder [Unknown]
  - White blood cell count abnormal [Unknown]
  - Nocturia [Unknown]
  - Blood test abnormal [Unknown]
  - Depression [Unknown]
  - Urinary tract disorder [Unknown]
  - Platelet count increased [Unknown]
